FAERS Safety Report 9632677 (Version 2)
Quarter: 2013Q4

REPORT INFORMATION
  Report Type: Report from Study
  Country: US (occurrence: US)
  Receive Date: 20131018
  Receipt Date: 20131018
  Transmission Date: 20140711
  Serious: Yes (Hospitalization)
  Sender: FDA-Public Use
  Company Number: US-ABBVIE-13P-163-1121467-00

PATIENT
  Age: 68 Year
  Sex: Female

DRUGS (10)
  1. HUMIRA [Suspect]
     Indication: CROHN^S DISEASE
     Dates: start: 20130701, end: 20130701
  2. HUMIRA [Suspect]
     Dates: start: 20130717, end: 20130717
  3. HUMIRA [Suspect]
     Dosage: 40 MG EVERY OTHER WEDNESDAY
     Dates: start: 20130731
  4. PHENERGAN [Concomitant]
     Indication: NAUSEA
  5. ACETAMINOPHEN W/CODEINE [Concomitant]
     Indication: PAIN
  6. CLONAZEPAM [Concomitant]
     Indication: INSOMNIA
  7. PREDNISONE [Concomitant]
     Indication: PRODUCT USED FOR UNKNOWN INDICATION
  8. PRILOSEC [Concomitant]
     Indication: GASTRIC DISORDER
  9. LOPERAMIDE [Concomitant]
     Indication: DIARRHOEA
     Dosage: AT LEAST TWICE A DAY
  10. ESTRADIOL [Concomitant]
     Indication: HORMONE REPLACEMENT THERAPY

REACTIONS (12)
  - Dehydration [Not Recovered/Not Resolved]
  - Diarrhoea [Recovering/Resolving]
  - Injection site pain [Unknown]
  - Drug ineffective [Recovering/Resolving]
  - Frequent bowel movements [Recovering/Resolving]
  - Asthenia [Not Recovered/Not Resolved]
  - Hypophagia [Not Recovered/Not Resolved]
  - Mobility decreased [Not Recovered/Not Resolved]
  - Pain [Not Recovered/Not Resolved]
  - Dehydration [Unknown]
  - Nausea [Not Recovered/Not Resolved]
  - Vomiting [Not Recovered/Not Resolved]
